FAERS Safety Report 9712190 (Version 1)
Quarter: 2013Q4

REPORT INFORMATION
  Report Type: Spontaneous
  Country: PR (occurrence: US)
  Receive Date: 20131126
  Receipt Date: 20131126
  Transmission Date: 20140711
  Serious: No
  Sender: FDA-Public Use
  Company Number: US-BRISTOL-MYERS SQUIBB COMPANY-18852012

PATIENT
  Age: 5 Decade
  Sex: Male

DRUGS (3)
  1. BYDUREON [Suspect]
     Dosage: 8 WEEKS
  2. BYDUREON [Suspect]
     Dosage: 8 WK
  3. METFORMIN HCL [Suspect]

REACTIONS (1)
  - Drug ineffective [Unknown]
